FAERS Safety Report 7678829-6 (Version None)
Quarter: 2011Q3

REPORT INFORMATION
  Report Type: 
  Country: None (occurrence: None)
  Receive Date: 20110812
  Receipt Date: 20110804
  Transmission Date: 20111222
  Serious: Yes (Other)
  Sender: FDA-Public Use
  Company Number: JP-BRISTOL-MYERS SQUIBB COMPANY-15500929

PATIENT
  Age: 72 Year
  Sex: Female

DRUGS (15)
  1. ETANERCEPT [Concomitant]
  2. ISONIAZID [Concomitant]
  3. ACTONEL [Concomitant]
  4. ORENCIA [Suspect]
     Indication: RHEUMATOID ARTHRITIS
     Dosage: LAST INFUSION DATE: 11MAY11.
     Route: 041
     Dates: start: 20101206
  5. PREDNISOLONE [Concomitant]
  6. ONEALFA [Concomitant]
  7. EBASTINE [Concomitant]
     Indication: PREMEDICATION
  8. DIOVAN [Concomitant]
  9. MUCOSTA [Concomitant]
  10. CLARITHROMYCIN [Concomitant]
  11. VOLTAREN [Concomitant]
     Indication: RHEUMATOID ARTHRITIS
  12. MUCOSOLVAN [Concomitant]
  13. METHOTREXATE [Concomitant]
  14. BUCILLAMINE [Concomitant]
  15. ATELEC [Concomitant]

REACTIONS (2)
  - WEIGHT INCREASED [None]
  - OEDEMA PERIPHERAL [None]
